FAERS Safety Report 5190125-8 (Version None)
Quarter: 2006Q4

REPORT INFORMATION
  Report Type: 
  Country: None (occurrence: None)
  Receive Date: 20061222
  Receipt Date: 20061215
  Transmission Date: 20070319
  Serious: Yes (Hospitalization, Other)
  Sender: FDA-Public Use
  Company Number: GB-JNJFOC-20061204956

PATIENT
  Sex: Female

DRUGS (7)
  1. REMICADE [Suspect]
     Indication: WEGENER'S GRANULOMATOSIS
     Route: 042
  2. PREDNISOLONE [Concomitant]
     Route: 065
  3. CALCICHEW [Concomitant]
     Route: 065
  4. CLOPIDOGREL [Concomitant]
     Route: 065
  5. ESOMEPRAZOLE MAGNESIUM [Concomitant]
     Route: 065
  6. NYSTATIN [Concomitant]
     Route: 065
  7. RESIDRONATE [Concomitant]
     Route: 065

REACTIONS (2)
  - PAIN [None]
  - WEGENER'S GRANULOMATOSIS [None]
